FAERS Safety Report 15360479 (Version 1)
Quarter: 2018Q3

REPORT INFORMATION
  Report Type: Spontaneous
  Country: TN (occurrence: TN)
  Receive Date: 20180907
  Receipt Date: 20180907
  Transmission Date: 20181010
  Serious: Yes (Life-Threatening, Hospitalization, Other)
  Sender: FDA-Public Use
  Company Number: TN-SUN PHARMACEUTICAL INDUSTRIES LTD-2018RR-183737

PATIENT
  Age: 37 Year
  Sex: Female

DRUGS (4)
  1. RISPERIDONE. [Suspect]
     Active Substance: RISPERIDONE
     Indication: SCHIZOPHRENIA
     Dosage: 6 MG, DAILY
     Route: 065
  2. HALOPERIDOL. [Suspect]
     Active Substance: HALOPERIDOL
     Indication: SCHIZOPHRENIA
     Dosage: 60 MG, DAILY
     Route: 065
  3. PIPOTIAZINE [Suspect]
     Active Substance: PIPOTIAZINE
     Indication: SCHIZOPHRENIA
     Dosage: 100 MG, MONTHLY
     Route: 065
  4. CLOZAPINE. [Suspect]
     Active Substance: CLOZAPINE
     Indication: SCHIZOPHRENIA
     Dosage: UNK
     Route: 065

REACTIONS (11)
  - Eye excision [Recovered/Resolved with Sequelae]
  - Dysphagia [Unknown]
  - Intentional self-injury [Unknown]
  - Sedation [Unknown]
  - Scratch [Unknown]
  - Schizophrenia [Recovering/Resolving]
  - Treatment noncompliance [Unknown]
  - Salivary hypersecretion [Unknown]
  - Drug effect incomplete [Unknown]
  - Bite [Unknown]
  - Drug ineffective [Recovering/Resolving]
